FAERS Safety Report 6649047-5 (Version None)
Quarter: 2010Q1

REPORT INFORMATION
  Report Type: 
  Country: None (occurrence: None)
  Receive Date: 20100319
  Receipt Date: 20100308
  Transmission Date: 20100710
  Serious: Yes (Hospitalization, Congenital Anomaly, Other)
  Sender: FDA-Public Use
  Company Number: 008424

PATIENT
  Age: 5 Month
  Sex: Female

DRUGS (2)
  1. KEPPRA [Suspect]
     Dosage: TRANSPLACENTAL
     Route: 064
  2. FOLIC ACID [Concomitant]

REACTIONS (12)
  - ABNORMAL PALMAR/PLANTAR CREASES [None]
  - BACK DISORDER [None]
  - CONGENITAL ANOMALY [None]
  - CONGENITAL AURAL FISTULA [None]
  - CONGENITAL NOSE MALFORMATION [None]
  - DYSMORPHISM [None]
  - FOETAL GROWTH RETARDATION [None]
  - HYPOTONIA NEONATAL [None]
  - LOW SET EARS [None]
  - MATERNAL DRUGS AFFECTING FOETUS [None]
  - MUSCULOSKELETAL DISORDER [None]
  - SMALL FOR DATES BABY [None]
